FAERS Safety Report 18963711 (Version 1)
Quarter: 2021Q1

REPORT INFORMATION
  Report Type: Spontaneous
  Country: JP (occurrence: JP)
  Receive Date: 20210303
  Receipt Date: 20210303
  Transmission Date: 20210420
  Serious: Yes (Hospitalization, Other)
  Sender: FDA-Public Use
  Company Number: JP-BRISTOL-MYERS SQUIBB COMPANY-BMS-2020-058376

PATIENT
  Age: 68 Year
  Sex: Female

DRUGS (1)
  1. OPDIVO [Suspect]
     Active Substance: NIVOLUMAB
     Indication: TONGUE NEOPLASM MALIGNANT STAGE UNSPECIFIED
     Dosage: 240 MG
     Route: 041
     Dates: start: 20190218, end: 20200108

REACTIONS (5)
  - Spinal osteoarthritis [Recovering/Resolving]
  - Mucocutaneous disorder [Recovering/Resolving]
  - Paronychia [Recovering/Resolving]
  - Pneumonia [Recovering/Resolving]
  - Drug eruption [Unknown]

NARRATIVE: CASE EVENT DATE: 20200122
